FAERS Safety Report 21157720 (Version 1)
Quarter: 2022Q3

REPORT INFORMATION
  Report Type: Spontaneous
  Country: US (occurrence: None)
  Receive Date: 20220731
  Receipt Date: 20220731
  Transmission Date: 20221027
  Serious: No
  Sender: FDA-Public Use
  Company Number: None

PATIENT
  Age: 63 Year
  Sex: Female

DRUGS (1)
  1. VENLAFAXINE HYDROCHLORIDE [Suspect]
     Active Substance: VENLAFAXINE HYDROCHLORIDE
     Indication: Affective disorder
     Route: 048

REACTIONS (4)
  - Product substitution issue [None]
  - Anxiety [None]
  - Nausea [None]
  - Irritability [None]

NARRATIVE: CASE EVENT DATE: 20220701
